FAERS Safety Report 4994242-4 (Version None)
Quarter: 2006Q2

REPORT INFORMATION
  Report Type: 
  Country: None (occurrence: None)
  Receive Date: 20060503
  Receipt Date: 20060420
  Transmission Date: 20061013
  Serious: Yes (Life-Threatening, Other)
  Sender: FDA-Public Use
  Company Number: TN-2006-009780

PATIENT
  Age: 62 Year
  Sex: Male

DRUGS (1)
  1. SOTALOL [Suspect]
     Indication: ARRHYTHMIA
     Dosage: 1 TAB (S), 1X/DAY, ORAL
     Route: 048
     Dates: end: 20060420

REACTIONS (2)
  - EOSINOPHIL COUNT INCREASED [None]
  - RETROPERITONEAL FIBROSIS [None]
